FAERS Safety Report 17134780 (Version 2)
Quarter: 2020Q1

REPORT INFORMATION
  Report Type: Spontaneous
  Country: IN (occurrence: IN)
  Receive Date: 20191210
  Receipt Date: 20200131
  Transmission Date: 20200409
  Serious: Yes (Hospitalization, Other)
  Sender: FDA-Public Use
  Company Number: NVSC2019IN058643

PATIENT
  Age: 4 Year
  Sex: Male

DRUGS (1)
  1. METHYLPREDNISOLONE. [Suspect]
     Active Substance: METHYLPREDNISOLONE
     Indication: NEUROMYELITIS OPTICA SPECTRUM DISORDER
     Dosage: 5 DAY COURSE OF METHYL PREDNISOLONE
     Route: 065

REACTIONS (4)
  - Altered state of consciousness [Unknown]
  - Hyperventilation [Unknown]
  - Neuromyelitis optica spectrum disorder [Unknown]
  - Product use in unapproved indication [Unknown]
